FAERS Safety Report 21436142 (Version 2)
Quarter: 2022Q4

REPORT INFORMATION
  Report Type: Report from Study
  Country: MX (occurrence: MX)
  Receive Date: 20221010
  Receipt Date: 20221019
  Transmission Date: 20230112
  Serious: Yes (Hospitalization, Other)
  Sender: FDA-Public Use
  Company Number: MX-UCBSA-2022040032

PATIENT
  Age: 7 Year
  Sex: Male

DRUGS (4)
  1. LACOSAMIDE [Suspect]
     Active Substance: LACOSAMIDE
     Indication: Seizure
     Dosage: 50MG IN BREAKFAST AND 100MG (2 TABLETS OF 50MG) AT NIGHT
     Route: 048
     Dates: start: 202107
  2. LACOSAMIDE [Suspect]
     Active Substance: LACOSAMIDE
     Indication: Epilepsy
  3. VALPROATE MAGNESIUM [Concomitant]
     Active Substance: VALPROATE MAGNESIUM
     Indication: Product used for unknown indication
  4. TAMLET [Concomitant]
     Indication: Product used for unknown indication

REACTIONS (5)
  - Cardiac disorder [Unknown]
  - Illness [Recovered/Resolved]
  - Cardiac operation [Unknown]
  - Cardiac pacemaker insertion [Unknown]
  - Off label use [Unknown]

NARRATIVE: CASE EVENT DATE: 20210701
